FAERS Safety Report 23907320 (Version 2)
Quarter: 2024Q2

REPORT INFORMATION
  Report Type: Spontaneous
  Country: SG (occurrence: None)
  Receive Date: 20240528
  Receipt Date: 20240530
  Transmission Date: 20240715
  Serious: Yes (Death)
  Sender: FDA-Public Use
  Company Number: SG-ROCHE-3570372

PATIENT
  Age: 76 Year
  Sex: Female

DRUGS (1)
  1. PHESGO [Suspect]
     Active Substance: HYALURONIDASE-ZZXF\PERTUZUMAB\TRASTUZUMAB
     Indication: Breast cancer
     Route: 065

REACTIONS (3)
  - Death [Fatal]
  - Breast operation [Unknown]
  - Infection [Unknown]

NARRATIVE: CASE EVENT DATE: 20230701
